FAERS Safety Report 7025063-9 (Version None)
Quarter: 2010Q4

REPORT INFORMATION
  Report Type: 
  Country: None (occurrence: None)
  Receive Date: 20101001
  Receipt Date: 20100928
  Transmission Date: 20110411
  Serious: Yes (Death, Hospitalization)
  Sender: FDA-Public Use
  Company Number: US-CELGENEUS-163-21880-10072634

PATIENT
  Sex: Male

DRUGS (4)
  1. REVLIMID [Suspect]
     Route: 048
     Dates: start: 20100501, end: 20100616
  2. REVLIMID [Suspect]
     Route: 048
     Dates: start: 20100716, end: 20100731
  3. WHOLE BLOOD [Concomitant]
     Indication: BLOOD COUNT ABNORMAL
     Dosage: 13 UNITS
     Route: 051
     Dates: start: 20100601, end: 20100601
  4. NEUPOGEN [Concomitant]
     Indication: PRODUCT USED FOR UNKNOWN INDICATION
     Route: 065

REACTIONS (8)
  - ANAEMIA [None]
  - ASTHENIA [None]
  - DEATH [None]
  - DIZZINESS [None]
  - NEUTROPENIA [None]
  - ORTHOSTATIC HYPOTENSION [None]
  - PYREXIA [None]
  - RESPIRATORY TRACT INFECTION [None]
